FAERS Safety Report 5833578-1 (Version None)
Quarter: 2008Q3

REPORT INFORMATION
  Report Type: 
  Country: None (occurrence: None)
  Receive Date: 20080805
  Receipt Date: 20080724
  Transmission Date: 20090109
  Serious: Yes (Other)
  Sender: FDA-Public Use
  Company Number: US-ROCHE-552207

PATIENT
  Sex: Male
  Weight: 83.9 kg

DRUGS (1)
  1. ACCUTANE [Suspect]
     Route: 065
     Dates: start: 19950504, end: 19951015

REACTIONS (10)
  - ANXIETY [None]
  - ARTHRALGIA [None]
  - COLITIS ULCERATIVE [None]
  - EPISTAXIS [None]
  - IMPETIGO [None]
  - INFLAMMATORY BOWEL DISEASE [None]
  - NO THERAPEUTIC RESPONSE [None]
  - POUCHITIS [None]
  - WEIGHT DECREASED [None]
  - XEROSIS [None]
